FAERS Safety Report 7748115-4 (Version None)
Quarter: 2011Q3

REPORT INFORMATION
  Report Type: 
  Country: None (occurrence: None)
  Receive Date: 20110913
  Receipt Date: 20110902
  Transmission Date: 20111222
  Serious: Yes (Hospitalization)
  Sender: FDA-Public Use
  Company Number: AU-GILEAD-2011-0043560

PATIENT
  Sex: Female

DRUGS (4)
  1. EFAVIRENZ [Concomitant]
     Indication: HIV INFECTION
     Dates: start: 20021205
  2. VIREAD [Suspect]
     Indication: HIV INFECTION
     Dates: start: 20050916
  3. PROPRANOLOL [Concomitant]
  4. EMTRIVA [Suspect]
     Indication: HIV INFECTION
     Dates: start: 20090113

REACTIONS (1)
  - NEPHROLITHIASIS [None]
